FAERS Safety Report 8248383-9 (Version None)
Quarter: 2012Q1

REPORT INFORMATION
  Report Type: 
  Country: None (occurrence: None)
  Receive Date: 20120330
  Receipt Date: 20120323
  Transmission Date: 20120608
  Serious: Yes (Other)
  Sender: FDA-Public Use
  Company Number: CHPA2012US005358

PATIENT
  Age: 58 Year
  Sex: Male

DRUGS (2)
  1. PREVACID 24 HR [Suspect]
     Indication: GASTROOESOPHAGEAL REFLUX DISEASE
     Dosage: 30 MG AT A TIME
     Route: 048
  2. PREVACID 24 HR [Suspect]
     Dosage: 15MG
     Route: 048

REACTIONS (6)
  - DRUG WITHDRAWAL SYNDROME [None]
  - INCORRECT DRUG ADMINISTRATION DURATION [None]
  - OFF LABEL USE [None]
  - OVERDOSE [None]
  - DISCOMFORT [None]
  - THERAPEUTIC RESPONSE UNEXPECTED [None]
